FAERS Safety Report 10642448 (Version 1)
Quarter: 2014Q4

REPORT INFORMATION
  Report Type: Spontaneous
  Country: US (occurrence: None)
  Receive Date: 20141208
  Receipt Date: 20141208
  Transmission Date: 20150529
  Serious: Yes (Other)
  Sender: FDA-Public Use
  Company Number: KAD201412-001579

PATIENT
  Sex: Female

DRUGS (3)
  1. RIBAVIRIN (RIBAVIRIN) [Suspect]
     Active Substance: RIBAVIRIN
  2. INTERFERON ALFACON-1 [Suspect]
     Active Substance: INTERFERON ALFACON-1
  3. PEGASYS [Suspect]
     Active Substance: PEGINTERFERON ALFA-2A

REACTIONS (3)
  - Malaise [None]
  - Headache [None]
  - Unevaluable event [None]
